FAERS Safety Report 11236181 (Version 1)
Quarter: 2015Q3

REPORT INFORMATION
  Report Type: Report from Study
  Country: ES (occurrence: ES)
  Receive Date: 20150702
  Receipt Date: 20150702
  Transmission Date: 20151125
  Serious: Yes (Other)
  Sender: FDA-Public Use
  Company Number: ES-PFIZER INC-2015214792

PATIENT
  Age: 86 Year
  Sex: Male

DRUGS (6)
  1. LEVODOPA/CARBIDOPA [Suspect]
     Active Substance: CARBIDOPA\LEVODOPA
     Dosage: UNK
  2. LORAZEPAM. [Suspect]
     Active Substance: LORAZEPAM
     Dosage: UNK
  3. TIAPRIDE [Suspect]
     Active Substance: TIAPRIDE
     Indication: MENTAL DISORDER
     Dosage: 200 MG, UNK
     Route: 048
  4. HALOPERIDOL. [Suspect]
     Active Substance: HALOPERIDOL
     Indication: MENTAL DISORDER
     Dosage: 2.5 MG, UNK
     Route: 058
  5. CABERGOLINE. [Suspect]
     Active Substance: CABERGOLINE
     Dosage: UNK
  6. MAPROTILINE [Suspect]
     Active Substance: MAPROTILINE
     Dosage: UNK

REACTIONS (1)
  - Tremor [Unknown]

NARRATIVE: CASE EVENT DATE: 2005
